FAERS Safety Report 16987760 (Version 3)
Quarter: 2019Q4

REPORT INFORMATION
  Report Type: Spontaneous
  Country: US (occurrence: US)
  Receive Date: 20191104
  Receipt Date: 20191115
  Transmission Date: 20200122
  Serious: Yes (Other)
  Sender: FDA-Public Use
  Company Number: US-AMGEN-USASP2019180110

PATIENT
  Age: 68 Year
  Sex: Female
  Weight: 89.8 kg

DRUGS (11)
  1. METFORMIN [Concomitant]
     Active Substance: METFORMIN HYDROCHLORIDE
  2. VITAMIN D [COLECALCIFEROL] [Concomitant]
     Active Substance: CHOLECALCIFEROL
  3. VOLTAREN [DICLOFENAC] [Concomitant]
     Active Substance: DICLOFENAC SODIUM
  4. VICODIN [Concomitant]
     Active Substance: ACETAMINOPHEN\HYDROCODONE BITARTRATE
     Dosage: UNK, AS NECESSARY
  5. CHLORTHALIDONE. [Concomitant]
     Active Substance: CHLORTHALIDONE
  6. CALCIUM [Concomitant]
     Active Substance: CALCIUM
  7. METOPROLOL. [Concomitant]
     Active Substance: METOPROLOL
  8. PROLIA [Suspect]
     Active Substance: DENOSUMAB
     Indication: OSTEOPOROSIS POSTMENOPAUSAL
     Dosage: 60 MILLIGRAM, Q6MO
     Route: 058
     Dates: end: 20190325
  9. EVENITY [Suspect]
     Active Substance: ROMOSOZUMAB-AQQG
     Indication: OSTEOPOROSIS POSTMENOPAUSAL
     Dosage: 210 MILLIGRAM, QMO
     Route: 058
     Dates: start: 20191002
  10. POTASSIUM [Concomitant]
     Active Substance: POTASSIUM
  11. NORVASC [Concomitant]
     Active Substance: AMLODIPINE BESYLATE

REACTIONS (8)
  - Appetite disorder [Unknown]
  - Arthralgia [Unknown]
  - Alopecia [Unknown]
  - Myalgia [Unknown]
  - Weight increased [Unknown]
  - Hair colour changes [Unknown]
  - Fracture [Unknown]
  - Bone pain [Unknown]

NARRATIVE: CASE EVENT DATE: 201910
